FAERS Safety Report 25358551 (Version 2)
Quarter: 2025Q2

REPORT INFORMATION
  Report Type: Spontaneous
  Country: JP (occurrence: JP)
  Receive Date: 20250526
  Receipt Date: 20250626
  Transmission Date: 20250716
  Serious: Yes (Other)
  Sender: MERCK SHARP & DOHME LLC
  Company Number: JP-009507513-2288865

PATIENT
  Age: 9 Decade
  Sex: Male

DRUGS (1)
  1. PEMBROLIZUMAB [Suspect]
     Active Substance: PEMBROLIZUMAB
     Indication: Hypopharyngeal cancer

REACTIONS (2)
  - Radiation pneumonitis [Unknown]
  - Oesophageal wall hypertrophy [Unknown]

NARRATIVE: CASE EVENT DATE: 20220101
